FAERS Safety Report 8491063-5 (Version None)
Quarter: 2012Q3

REPORT INFORMATION
  Report Type: 
  Country: None (occurrence: None)
  Receive Date: 20120706
  Receipt Date: 20120529
  Transmission Date: 20120928
  Serious: Yes (Hospitalization)
  Sender: FDA-Public Use
  Company Number: NO-JNJFOC-20120606679

PATIENT
  Sex: Male

DRUGS (8)
  1. PENTASA [Concomitant]
     Route: 065
     Dates: start: 20110601
  2. METOPROLOL SUCCINATE [Concomitant]
     Route: 065
     Dates: start: 20110601
  3. ZOCOR [Suspect]
     Indication: PRODUCT USED FOR UNKNOWN INDICATION
     Route: 048
     Dates: start: 20110601
  4. REMICADE [Suspect]
     Indication: ANKYLOSING SPONDYLITIS
     Route: 041
     Dates: start: 20110608, end: 20110601
  5. REMICADE [Suspect]
     Route: 041
     Dates: start: 20080101
  6. FUROSEMIDE [Concomitant]
     Route: 065
     Dates: start: 20110601
  7. ATACAND HCT [Concomitant]
     Route: 065
     Dates: start: 20110601
  8. ASPIRIN [Concomitant]
     Route: 065
     Dates: start: 20110601

REACTIONS (5)
  - CARDIAC FAILURE [None]
  - AORTIC VALVE INCOMPETENCE [None]
  - CORONARY ARTERY STENOSIS [None]
  - ATRIAL FIBRILLATION [None]
  - SUBILEUS [None]
